FAERS Safety Report 6726439-7 (Version None)
Quarter: 2010Q2

REPORT INFORMATION
  Report Type: 
  Country: None (occurrence: None)
  Receive Date: 20100514
  Receipt Date: 20100510
  Transmission Date: 20101027
  Serious: Yes (Other)
  Sender: FDA-Public Use
  Company Number: US-MYLANLABS-2010S1008333

PATIENT
  Age: 55 Year
  Sex: Female

DRUGS (8)
  1. FENTANYL CITRATE [Suspect]
     Indication: PAIN
     Dosage: Q48H
     Route: 062
     Dates: start: 20100401, end: 20100507
  2. PLAVIX [Concomitant]
  3. CORGARD [Concomitant]
  4. PLETAL [Concomitant]
  5. NEURONTIN [Concomitant]
  6. INSULIN [Concomitant]
  7. ALTACE [Concomitant]
  8. MOBIC [Concomitant]

REACTIONS (4)
  - DRUG INEFFECTIVE [None]
  - DRUG SCREEN NEGATIVE [None]
  - DRUG WITHDRAWAL SYNDROME [None]
  - PAIN [None]
